FAERS Safety Report 5719952-2 (Version None)
Quarter: 2008Q2

REPORT INFORMATION
  Report Type: 
  Country: None (occurrence: None)
  Receive Date: 20080428
  Receipt Date: 20070419
  Transmission Date: 20081010
  Serious: Yes (Other)
  Sender: FDA-Public Use
  Company Number: US-AMGEN-US212154

PATIENT
  Sex: Male
  Weight: 63 kg

DRUGS (8)
  1. SENSIPAR [Suspect]
     Indication: HYPERPARATHYROIDISM SECONDARY
     Route: 048
     Dates: start: 20061016, end: 20061222
  2. NOVOLOG [Concomitant]
  3. CLONIDINE HCL [Concomitant]
     Dates: start: 20060712
  4. VALIUM [Concomitant]
     Dates: start: 20040101
  5. NORVASC [Concomitant]
     Dates: start: 20050101
  6. RENAGEL [Concomitant]
     Dates: start: 20060101
  7. DIOVAN [Concomitant]
  8. BENADRYL [Concomitant]

REACTIONS (1)
  - CONVULSION [None]
